FAERS Safety Report 6959487-2 (Version None)
Quarter: 2010Q3

REPORT INFORMATION
  Report Type: 
  Country: None (occurrence: None)
  Receive Date: 20100827
  Receipt Date: 20100817
  Transmission Date: 20110219
  Serious: Yes (Death)
  Sender: FDA-Public Use
  Company Number: KV200800842

PATIENT
  Age: 56 Year
  Sex: Male
  Weight: 107 kg

DRUGS (7)
  1. MORPHINE SULFATE [Suspect]
     Indication: PAIN
     Dosage: 30 MG, TID, ORAL
     Route: 048
     Dates: start: 20080316, end: 20080401
  2. ASPIRIN [Concomitant]
  3. NITROGLYCERIN [Concomitant]
  4. SIMVASTATIN [Concomitant]
  5. GABAPENTIN [Concomitant]
  6. DVAIR (FLUTICASONE PROPIONATE, SALMETEROL XINAFOATE) [Concomitant]
  7. ZOLOFT [Concomitant]

REACTIONS (8)
  - ACUTE MYOCARDIAL INFARCTION [None]
  - ANGINA PECTORIS [None]
  - CARDIAC ARREST [None]
  - NAUSEA [None]
  - PALLOR [None]
  - RESPIRATORY FAILURE [None]
  - UNRESPONSIVE TO STIMULI [None]
  - VENTRICULAR FIBRILLATION [None]
